FAERS Safety Report 16476645 (Version 1)
Quarter: 2019Q2

REPORT INFORMATION
  Report Type: Spontaneous
  Country: US (occurrence: US)
  Receive Date: 20190626
  Receipt Date: 20190626
  Transmission Date: 20190711
  Serious: No
  Sender: FDA-Public Use
  Company Number: US-009507513-1906USA007465

PATIENT
  Sex: Male

DRUGS (5)
  1. LEVOTHYROXINE SODIUM. [Suspect]
     Active Substance: LEVOTHYROXINE SODIUM
     Dosage: AT 6:00 AM
  2. NORTHERA [Suspect]
     Active Substance: DROXIDOPA
     Dosage: DAYTIME HOURS
  3. SINEMET [Suspect]
     Active Substance: CARBIDOPA\LEVODOPA
     Dosage: AT 7 AM
     Route: 048
  4. FLUDROCORTISONE [Concomitant]
     Active Substance: FLUDROCORTISONE
     Dosage: DAYTIME HOURS
  5. NORTHERA [Suspect]
     Active Substance: DROXIDOPA
     Dosage: AT 8AM
     Dates: start: 2016

REACTIONS (2)
  - Freezing phenomenon [Unknown]
  - Sleep disorder [Unknown]
